FAERS Safety Report 9204829 (Version 1)
Quarter: 2013Q2

REPORT INFORMATION
  Report Type: Spontaneous
  Country: US (occurrence: US)
  Receive Date: 20130402
  Receipt Date: 20130402
  Transmission Date: 20140414
  Serious: No
  Sender: FDA-Public Use
  Company Number: US-009507513-1304USA000517

PATIENT
  Age: 18 Year
  Sex: Female
  Weight: 68.27 kg

DRUGS (1)
  1. IMPLANON [Suspect]
     Indication: CONTRACEPTION
     Dosage: 1 ROD UP TO 3 YEARS, ROUTE : IMPLANT LEFT ARM
     Route: 059
     Dates: start: 20111220

REACTIONS (3)
  - Medical device complication [Unknown]
  - Complication of device insertion [Unknown]
  - No adverse event [Unknown]
